FAERS Safety Report 19351411 (Version 1)
Quarter: 2021Q2

REPORT INFORMATION
  Report Type: Report from Study
  Country: BR (occurrence: BR)
  Receive Date: 20210531
  Receipt Date: 20210531
  Transmission Date: 20210717
  Serious: Yes (Other)
  Sender: FDA-Public Use
  Company Number: BR-TAKEDA-2021TUS033695

PATIENT
  Sex: Male

DRUGS (2)
  1. HEMO?8R [Suspect]
     Active Substance: ANTIHEMOPHILIC FACTOR, HUMAN RECOMBINANT
     Indication: FACTOR VIII DEFICIENCY
     Dosage: 500 INTERNATIONAL UNIT, QOD
     Route: 065
  2. HEMO?8R [Suspect]
     Active Substance: ANTIHEMOPHILIC FACTOR, HUMAN RECOMBINANT
     Dosage: 1000 INTERNATIONAL UNIT, QOD
     Route: 042
     Dates: start: 2004

REACTIONS (7)
  - Injury [Unknown]
  - Inflammation [Recovering/Resolving]
  - Nail disorder [Recovering/Resolving]
  - Haemorrhage [Recovering/Resolving]
  - Nail injury [Recovering/Resolving]
  - Erythema [Recovering/Resolving]
  - Weight increased [Unknown]
